FAERS Safety Report 23512538 (Version 1)
Quarter: 2024Q1

REPORT INFORMATION
  Report Type: Spontaneous
  Country: GB (occurrence: GB)
  Receive Date: 20240212
  Receipt Date: 20240212
  Transmission Date: 20240410
  Serious: Yes (Disabling, Other)
  Sender: FDA-Public Use
  Company Number: GB-CELLTRION INC.-2024GB003052

PATIENT

DRUGS (1)
  1. YUFLYMA [Suspect]
     Active Substance: ADALIMUMAB-AATY
     Indication: Product used for unknown indication
     Dosage: 40 MG
     Route: 058
     Dates: start: 202310, end: 202402

REACTIONS (10)
  - Deafness [Unknown]
  - Myalgia [Unknown]
  - Nasal obstruction [Unknown]
  - Decreased appetite [Unknown]
  - Feeling abnormal [Unknown]
  - Headache [Unknown]
  - Hyperhidrosis [Unknown]
  - Alopecia [Unknown]
  - Night sweats [Unknown]
  - Rhinorrhoea [Unknown]
